FAERS Safety Report 5333748-5 (Version None)
Quarter: 2007Q2

REPORT INFORMATION
  Report Type: 
  Country: None (occurrence: None)
  Receive Date: 20070524
  Receipt Date: 20070511
  Transmission Date: 20071010
  Serious: Yes (Hospitalization)
  Sender: FDA-Public Use
  Company Number: US-JNJFOC-20070503510

PATIENT
  Sex: Female
  Weight: 80.29 kg

DRUGS (16)
  1. FENTANYL TRANSDERMAL SYSTEM [Suspect]
     Indication: SYSTEMIC LUPUS ERYTHEMATOSUS
     Route: 062
  2. OXYCODONE HCL [Concomitant]
     Indication: PAIN
     Route: 048
  3. TRACLEER [Concomitant]
     Indication: PULMONARY HYPERTENSION
     Route: 048
  4. PREDNISONE TAB [Concomitant]
     Indication: PULMONARY FIBROSIS
     Route: 048
  5. ASPIRIN [Concomitant]
     Indication: CARDIAC DISORDER
     Route: 048
  6. NEURONTIN [Concomitant]
     Indication: PAIN
     Route: 048
  7. COUMADIN [Concomitant]
     Indication: CARDIAC DISORDER
     Route: 048
  8. NORVASC [Concomitant]
     Indication: CARDIAC DISORDER
     Route: 048
  9. ATENOLOL [Concomitant]
     Indication: CARDIAC DISORDER
     Route: 048
  10. CELLCEPT [Concomitant]
     Indication: RENAL DISORDER
     Route: 048
  11. REVATIO [Concomitant]
     Indication: PULMONARY HYPERTENSION
     Route: 048
  12. PRILOSEC [Concomitant]
     Indication: DYSPEPSIA
     Route: 048
  13. FOSAMAX [Concomitant]
     Indication: OSTEOPOROSIS
     Route: 048
  14. XOPENEX [Concomitant]
     Indication: LUNG DISORDER
     Route: 048
  15. IPRATROPIUM BROMIDE [Concomitant]
     Indication: LUNG DISORDER
     Route: 048
  16. OSCAL [Concomitant]
     Indication: OSTEOPOROSIS
     Route: 048

REACTIONS (3)
  - INCORRECT DRUG ADMINISTRATION DURATION [None]
  - UNEVALUABLE EVENT [None]
  - WRONG TECHNIQUE IN DRUG USAGE PROCESS [None]
